FAERS Safety Report 8460426-6 (Version None)
Quarter: 2012Q2

REPORT INFORMATION
  Report Type: 
  Country: None (occurrence: None)
  Receive Date: 20120622
  Receipt Date: 20120613
  Transmission Date: 20120825
  Serious: Yes (Other)
  Sender: FDA-Public Use
  Company Number: US-ABBOTT-12P-163-0946632-00

PATIENT
  Sex: Male
  Weight: 102.15 kg

DRUGS (3)
  1. METHADONE HCL [Concomitant]
     Indication: PAIN
  2. METHOTREXATE [Concomitant]
     Indication: RHEUMATOID ARTHRITIS
  3. HUMIRA [Suspect]
     Indication: RHEUMATOID ARTHRITIS
     Dates: start: 20030401

REACTIONS (3)
  - CARTILAGE ATROPHY [None]
  - LIGAMENT DISORDER [None]
  - ARTHRALGIA [None]
